FAERS Safety Report 4327897-8 (Version None)
Quarter: 2004Q1

REPORT INFORMATION
  Report Type: 
  Country: None (occurrence: None)
  Receive Date: 20040325
  Receipt Date: 20040312
  Transmission Date: 20041129
  Serious: Yes (Death)
  Sender: FDA-Public Use
  Company Number: CH-JNJFOC-20040302678

PATIENT
  Sex: Male
  Weight: 150 kg

DRUGS (5)
  1. HALDOL [Suspect]
     Indication: AGITATION
     Dosage: 5 MG, 2 IN 1 DAY, INTRAVENOUS
     Route: 042
     Dates: start: 20031210, end: 20031210
  2. TALOFEN (PROMAZINE HYDROCHLORIDE) INJECTION [Suspect]
     Indication: AGITATION
     Dosage: 50 MG, IN 1 DAY, INTRA-MUSCULAR
     Route: 030
     Dates: start: 20031210, end: 20031210
  3. LITHIOFOR. (LITHIUM SULFATE) TABLETS [Concomitant]
  4. RISPERIDAL (RISPERIDONE) TABLETS [Concomitant]
  5. EFFEXOR [Concomitant]

REACTIONS (4)
  - BLOOD PH DECREASED [None]
  - DRUG INTERACTION [None]
  - RESPIRATORY FAILURE [None]
  - SLEEP APNOEA SYNDROME [None]
